FAERS Safety Report 23365318 (Version 1)
Quarter: 2024Q1

REPORT INFORMATION
  Report Type: Report from Study
  Country: US (occurrence: US)
  Receive Date: 20240104
  Receipt Date: 20240104
  Transmission Date: 20240410
  Serious: Yes (Hospitalization)
  Sender: FDA-Public Use
  Company Number: US-ABBVIE-5569696

PATIENT
  Sex: Male

DRUGS (1)
  1. VENCLEXTA [Suspect]
     Active Substance: VENETOCLAX
     Indication: Chronic myelomonocytic leukaemia
     Dosage: FORM STRENGTH: 100 MG?TAKE 4 TABLETS BY MOUTH ONCE DAILY FOR 14 DAYS ON THEN 14 DAYS OFF - TAKE W...
     Route: 048

REACTIONS (4)
  - Laboratory test abnormal [Recovering/Resolving]
  - Pyrexia [Recovering/Resolving]
  - Cellulitis [Recovering/Resolving]
  - Gout [Recovering/Resolving]
